FAERS Safety Report 17484064 (Version 1)
Quarter: 2020Q1

REPORT INFORMATION
  Report Type: Spontaneous
  Country: US (occurrence: US)
  Receive Date: 20200219
  Receipt Date: 20200219
  Transmission Date: 20200409
  Serious: Yes (Hospitalization)
  Sender: FDA-Public Use
  Company Number: None

PATIENT
  Age: 80 Year
  Sex: Female

DRUGS (31)
  1. ATORVASTATIN [Concomitant]
     Active Substance: ATORVASTATIN
  2. EAR WAX REMV DRO [Concomitant]
  3. ENALAPRIL [Concomitant]
     Active Substance: ENALAPRIL
  4. ONETOUCH TES ULTRA [Concomitant]
  5. DILTIAZEM. [Concomitant]
     Active Substance: DILTIAZEM
  6. FAMOTIDINE. [Concomitant]
     Active Substance: FAMOTIDINE
  7. LEVOTHYROXIN [Concomitant]
     Active Substance: LEVOTHYROXINE
  8. FUROSEMIDE. [Concomitant]
     Active Substance: FUROSEMIDE
  9. GABAPENTIN. [Concomitant]
     Active Substance: GABAPENTIN
  10. METHYLPRED [Concomitant]
     Active Substance: METHYLPREDNISOLONE
  11. NITROFUR MAC [Concomitant]
     Active Substance: NITROFURANTOIN
  12. SYMBICORT [Concomitant]
     Active Substance: BUDESONIDE\FORMOTEROL FUMARATE DIHYDRATE
  13. VIRTUSSIN AC [Concomitant]
     Active Substance: CODEINE PHOSPHATE\GUAIFENESIN
  14. GLYBURIDE. [Concomitant]
     Active Substance: GLYBURIDE
  15. HUMALOG [Concomitant]
     Active Substance: INSULIN LISPRO
  16. LEVOFLOXACIN. [Concomitant]
     Active Substance: LEVOFLOXACIN
  17. DOK [Concomitant]
     Active Substance: DOCUSATE SODIUM
  18. ELIQUIS [Concomitant]
     Active Substance: APIXABAN
  19. FLUCONAZOLE. [Concomitant]
     Active Substance: FLUCONAZOLE
  20. ONETOUCH DEL MIS PLUS [Concomitant]
  21. POLYMYXIN B/SOL TRIMETHP [Concomitant]
  22. ESBRIET [Suspect]
     Active Substance: PIRFENIDONE
     Indication: IDIOPATHIC PULMONARY FIBROSIS
     Route: 048
     Dates: start: 20191107
  23. ACYCLOVIR. [Concomitant]
     Active Substance: ACYCLOVIR
  24. ALBUTEROL. [Concomitant]
     Active Substance: ALBUTEROL
  25. AZITHROMYCIN ANHYDROUS. [Concomitant]
     Active Substance: AZITHROMYCIN ANHYDROUS
  26. DICLOFENAC [Concomitant]
     Active Substance: DICLOFENAC
  27. OFLOXACIN. [Concomitant]
     Active Substance: OFLOXACIN
  28. PREDNISOLONE. [Concomitant]
     Active Substance: PREDNISOLONE
  29. PREDNISONE. [Concomitant]
     Active Substance: PREDNISONE
  30. INSULIN SYRG MIS [Concomitant]
  31. METFORMIN [Concomitant]
     Active Substance: METFORMIN HYDROCHLORIDE

REACTIONS (5)
  - Pulmonary oedema [None]
  - Pericarditis [None]
  - Decreased appetite [None]
  - Therapy cessation [None]
  - Bronchitis [None]

NARRATIVE: CASE EVENT DATE: 202001
